FAERS Safety Report 24223816 (Version 2)
Quarter: 2024Q3

REPORT INFORMATION
  Report Type: Report from Study
  Country: IT (occurrence: IT)
  Receive Date: 20240819
  Receipt Date: 20240828
  Transmission Date: 20241017
  Serious: Yes (Other)
  Sender: JOHNSON AND JOHNSON
  Company Number: IT-JNJFOC-20240836033

PATIENT

DRUGS (2)
  1. RILPIVIRINE [Suspect]
     Active Substance: RILPIVIRINE
     Indication: HIV infection
     Route: 065
  2. CABOTEGRAVIR [Interacting]
     Active Substance: CABOTEGRAVIR
     Indication: HIV infection
     Route: 065

REACTIONS (7)
  - Hepatitis B [Unknown]
  - Major depression [Unknown]
  - Drug resistance mutation [Unknown]
  - Adverse drug reaction [Unknown]
  - Exposure during pregnancy [Unknown]
  - Drug interaction [Unknown]
  - Injection site pain [Unknown]
